FAERS Safety Report 21513880 (Version 1)
Quarter: 2022Q4

REPORT INFORMATION
  Report Type: Spontaneous
  Country: IT (occurrence: IT)
  Receive Date: 20221027
  Receipt Date: 20221027
  Transmission Date: 20230112
  Serious: Yes (Life-Threatening, Hospitalization, Other)
  Sender: FDA-Public Use
  Company Number: IT-AMGEN-ITASP2022182181

PATIENT
  Age: 24 Year
  Sex: Female

DRUGS (6)
  1. FILGRASTIM [Suspect]
     Active Substance: FILGRASTIM
     Indication: Prophylaxis
     Dosage: 5 MICROGRAM/KILOGRAM, QD
     Route: 065
  2. FILGRASTIM [Suspect]
     Active Substance: FILGRASTIM
     Dosage: 10 MICROGRAM/KILOGRAM, QD
     Route: 065
  3. FLUDARABINE [Concomitant]
     Active Substance: FLUDARABINE PHOSPHATE
     Dosage: 30 MG/M2, QD 5 DAYS
  4. CYTARABINE [Concomitant]
     Active Substance: CYTARABINE
     Dosage: 2,000 MG/M2, QD 5 DAYS
  5. IDARUBICIN [Concomitant]
     Active Substance: IDARUBICIN
     Dosage: 10 MG/M2, QD 3 DAYS
  6. POSACONAZOLE [Concomitant]
     Active Substance: POSACONAZOLE
     Indication: Prophylaxis

REACTIONS (14)
  - Geotrichum infection [Recovered/Resolved]
  - Febrile neutropenia [Recovered/Resolved]
  - Stomatitis [Recovering/Resolving]
  - Pneumonia fungal [Recovered/Resolved]
  - Bone marrow failure [Recovered/Resolved]
  - Generalised oedema [Recovering/Resolving]
  - Septic shock [Recovering/Resolving]
  - Respiratory distress [Recovering/Resolving]
  - Infectious pleural effusion [Recovered/Resolved]
  - Infective pericardial effusion [Recovered/Resolved]
  - Acute myeloid leukaemia [Unknown]
  - Chloroma [Unknown]
  - Ascites [Unknown]
  - Apathy [Unknown]
